FAERS Safety Report 19697154 (Version 1)
Quarter: 2021Q3

REPORT INFORMATION
  Report Type: Report from Study
  Country: US (occurrence: US)
  Receive Date: 20210813
  Receipt Date: 20210813
  Transmission Date: 20211014
  Serious: Yes (Other)
  Sender: FDA-Public Use
  Company Number: US-MYLANLABS-2021M1050170

PATIENT

DRUGS (3)
  1. TRIAMCINOLONE [Suspect]
     Active Substance: TRIAMCINOLONE
     Indication: CYSTOID MACULAR OEDEMA
     Dosage: FOR 16 MONTHS INTERMITTENTLY FOR THE LEFT EYE
  2. KETOROLAC [Suspect]
     Active Substance: KETOROLAC TROMETHAMINE
     Indication: CYSTOID MACULAR OEDEMA
     Dosage: FOR 16 MONTHS INTERMITTENTLY FOR THE LEFT AND RIGHT EYE
     Route: 065
  3. PREDNISOLONE. [Suspect]
     Active Substance: PREDNISOLONE
     Indication: CYSTOID MACULAR OEDEMA
     Dosage: FOR 16 MONTHS INTERMITTENTLY FOR THE LEFT AND RIGHT EYE
     Route: 065

REACTIONS (2)
  - Off label use [Unknown]
  - Treatment failure [Unknown]
